FAERS Safety Report 11869991 (Version 8)
Quarter: 2017Q1

REPORT INFORMATION
  Report Type: Report from Study
  Country: CA (occurrence: CA)
  Receive Date: 20151228
  Receipt Date: 20170213
  Transmission Date: 20170428
  Serious: Yes (Hospitalization, Other)
  Sender: FDA-Public Use
  Company Number: CA-ROCHE-1621453

PATIENT
  Age: 62 Year
  Sex: Male

DRUGS (40)
  1. PROGRAF [Suspect]
     Active Substance: TACROLIMUS\TACROLIMUS ANHYDROUS
     Indication: PRODUCT USED FOR UNKNOWN INDICATION
     Route: 065
  2. EZETROL [Concomitant]
     Active Substance: EZETIMIBE
  3. PREDNISONE. [Concomitant]
     Active Substance: PREDNISONE
     Route: 065
     Dates: start: 20140204
  4. MESTINON [Concomitant]
     Active Substance: PYRIDOSTIGMINE BROMIDE
     Route: 065
  5. PREDNISONE. [Concomitant]
     Active Substance: PREDNISONE
     Route: 065
     Dates: start: 20110628
  6. PREDNISONE. [Concomitant]
     Active Substance: PREDNISONE
     Dosage: 01/NOV TO 31/DEC/2013
     Route: 065
  7. PREDNISONE. [Concomitant]
     Active Substance: PREDNISONE
     Route: 065
     Dates: start: 20140401
  8. FLOMAX [Concomitant]
     Active Substance: TAMSULOSIN HYDROCHLORIDE
     Route: 065
  9. RESTASIS [Concomitant]
     Active Substance: CYCLOSPORINE
     Dosage: 2 DROPS PER DAY
     Route: 065
     Dates: start: 20140202
  10. TYLENOL [Concomitant]
     Active Substance: ACETAMINOPHEN
     Route: 048
     Dates: start: 20150827
  11. LYRICA [Concomitant]
     Active Substance: PREGABALIN
     Route: 065
  12. EFFEXOR [Concomitant]
     Active Substance: VENLAFAXINE HYDROCHLORIDE
  13. PREDNISONE. [Concomitant]
     Active Substance: PREDNISONE
     Route: 065
     Dates: start: 20110729
  14. VITAMIN C [Concomitant]
     Active Substance: ASCORBIC ACID
  15. OMEGA 3 [Concomitant]
     Active Substance: OMEGA-3 FATTY ACIDS
     Route: 065
  16. BENADRYL [Concomitant]
     Active Substance: DIPHENHYDRAMINE HYDROCHLORIDE
     Route: 048
     Dates: start: 20150827
  17. PREDNISONE. [Concomitant]
     Active Substance: PREDNISONE
     Route: 065
  18. PREDNISONE. [Concomitant]
     Active Substance: PREDNISONE
     Route: 065
     Dates: start: 20110904
  19. PREDNISONE. [Concomitant]
     Active Substance: PREDNISONE
     Route: 065
     Dates: start: 20111002
  20. PREDNISONE. [Concomitant]
     Active Substance: PREDNISONE
     Route: 065
     Dates: start: 20111225
  21. PREDNISONE. [Concomitant]
     Active Substance: PREDNISONE
     Route: 065
     Dates: start: 20120122
  22. PREDNISONE. [Concomitant]
     Active Substance: PREDNISONE
     Route: 065
     Dates: start: 20140101
  23. MESTINON [Concomitant]
     Active Substance: PYRIDOSTIGMINE BROMIDE
     Route: 065
     Dates: end: 20130927
  24. ASPIRIN. [Concomitant]
     Active Substance: ASPIRIN
  25. RITUXAN [Suspect]
     Active Substance: RITUXIMAB
     Route: 042
     Dates: start: 20150827
  26. ASA [Concomitant]
     Active Substance: ASPIRIN
     Route: 065
  27. PREDNISONE. [Concomitant]
     Active Substance: PREDNISONE
     Route: 065
     Dates: start: 20110715
  28. PREDNISONE. [Concomitant]
     Active Substance: PREDNISONE
     Route: 065
     Dates: start: 20111129
  29. PREDNISONE. [Concomitant]
     Active Substance: PREDNISONE
     Route: 065
     Dates: start: 20140304
  30. MESTINON [Concomitant]
     Active Substance: PYRIDOSTIGMINE BROMIDE
     Dosage: 3 TO 4 PILL PER DAY
     Route: 065
     Dates: start: 20140801
  31. ACLASTA [Concomitant]
     Active Substance: ZOLEDRONIC ACID
     Route: 042
  32. VENLAFAXINE [Concomitant]
     Active Substance: VENLAFAXINE HYDROCHLORIDE
  33. ACLASTA [Concomitant]
     Active Substance: ZOLEDRONIC ACID
  34. PREDNISONE. [Concomitant]
     Active Substance: PREDNISONE
     Route: 065
     Dates: start: 20110617
  35. TRIAMCINOLONE [Concomitant]
     Active Substance: TRIAMCINOLONE
  36. RITUXAN [Suspect]
     Active Substance: RITUXIMAB
     Indication: MYASTHENIA GRAVIS
     Route: 042
     Dates: start: 20120220
  37. NEXIUM [Concomitant]
     Active Substance: ESOMEPRAZOLE MAGNESIUM
     Route: 065
  38. PREDNISONE. [Concomitant]
     Active Substance: PREDNISONE
     Route: 065
     Dates: start: 20111030
  39. TRIAMCINOLONE [Concomitant]
     Active Substance: TRIAMCINOLONE
  40. RESTASIS [Concomitant]
     Active Substance: CYCLOSPORINE

REACTIONS (39)
  - Nausea [Unknown]
  - Muscular weakness [Unknown]
  - Blood pressure fluctuation [Unknown]
  - Gait disturbance [Unknown]
  - Spinal column stenosis [Unknown]
  - Haemoglobin decreased [Unknown]
  - Neutrophil count increased [Recovered/Resolved]
  - Blood pressure increased [Unknown]
  - Malaise [Unknown]
  - Gastroenteritis viral [Not Recovered/Not Resolved]
  - Gait disturbance [Not Recovered/Not Resolved]
  - Eyelid ptosis [Unknown]
  - Restrictive pulmonary disease [Unknown]
  - Blepharospasm [Unknown]
  - Muscle contractions involuntary [Unknown]
  - Monocyte count increased [Recovering/Resolving]
  - Blood urea increased [Unknown]
  - Glomerular filtration rate decreased [Unknown]
  - Blood cholesterol increased [Unknown]
  - Vertebral foraminal stenosis [Unknown]
  - Peripheral sensory neuropathy [Unknown]
  - Radiculopathy [Unknown]
  - Sleep apnoea syndrome [Unknown]
  - White blood cell count increased [Recovering/Resolving]
  - Fatigue [Not Recovered/Not Resolved]
  - Transient ischaemic attack [Unknown]
  - Gamma-glutamyltransferase increased [Unknown]
  - Asthenia [Unknown]
  - Blood pressure decreased [Unknown]
  - Blood creatinine increased [Unknown]
  - Blood immunoglobulin G decreased [Unknown]
  - Cognitive disorder [Not Recovered/Not Resolved]
  - Drug effect decreased [Unknown]
  - Pain [Recovering/Resolving]
  - Diplopia [Unknown]
  - Postural tremor [Unknown]
  - Low density lipoprotein increased [Unknown]
  - Nasopharyngitis [Not Recovered/Not Resolved]
  - Asthenia [Not Recovered/Not Resolved]

NARRATIVE: CASE EVENT DATE: 20151223
